FAERS Safety Report 10034394 (Version 1)
Quarter: 2014Q1

REPORT INFORMATION
  Report Type: Spontaneous
  Country: US (occurrence: None)
  Receive Date: 20140324
  Receipt Date: 20140324
  Transmission Date: 20141002
  Serious: Yes (Disabling)
  Sender: FDA-Public Use
  Company Number: None

PATIENT
  Age: 55 Year
  Sex: Female

DRUGS (1)
  1. SULFAMETH/TRIMETHOPRIM [Suspect]
     Indication: WOUND INFECTION
     Dosage: 1 PILL, ONCE DAILY, TAKEN BY MOUTH
     Route: 048
     Dates: start: 20120528, end: 20120602

REACTIONS (4)
  - Pain [None]
  - Drug hypersensitivity [None]
  - Paraesthesia [None]
  - Lumbosacral plexus injury [None]
